FAERS Safety Report 8521980-9 (Version None)
Quarter: 2012Q3

REPORT INFORMATION
  Report Type: 
  Country: None (occurrence: None)
  Receive Date: 20120719
  Receipt Date: 20080728
  Transmission Date: 20120928
  Serious: Yes (Other)
  Sender: FDA-Public Use
  Company Number: CO-PFIZER INC-2012170988

PATIENT
  Age: 57 Year
  Sex: Female

DRUGS (3)
  1. OLMESARTAN MEDOXOMIL AND HYDROCHLOROTHIZIDE [Suspect]
     Dosage: [OLMESARTAN MEDOXOMIL 20 MG]/ [HYDROCHLOROTHIAZIDE 12.5 MG], 1X/DAY
     Route: 048
  2. METOPROLOL TARTRATE [Concomitant]
     Dosage: 50 MG, 2X/DAY
     Route: 048
  3. LIPITOR [Suspect]
     Dosage: 10 MG, 1X/DAY
     Route: 048

REACTIONS (2)
  - DYSPNOEA [None]
  - CHEST PAIN [None]
